FAERS Safety Report 4723995-5 (Version None)
Quarter: 2005Q3

REPORT INFORMATION
  Report Type: 
  Country: None (occurrence: None)
  Receive Date: 20050721
  Receipt Date: 20050705
  Transmission Date: 20060218
  Serious: Yes (Hospitalization, Disabling)
  Sender: FDA-Public Use
  Company Number: 2005100317

PATIENT
  Age: 64 Year
  Sex: Male

DRUGS (15)
  1. CELEBREX [Suspect]
     Indication: ILL-DEFINED DISORDER
  2. PROCARDIA [Suspect]
     Indication: ILL-DEFINED DISORDER
     Dosage: 60 MG (60 MG, 1 IN 1 D)
  3. DIPHENHYDRAMINE HCL [Suspect]
     Indication: ILL-DEFINED DISORDER
     Dosage: 100 MG (50 MG, 2 IN 1 D), ORAL
     Route: 048
     Dates: start: 20000403
  4. NORVASC [Suspect]
     Indication: ILL-DEFINED DISORDER
     Dosage: 5 MG (5 MG, 1 IN 1 D), ORAL
     Route: 048
     Dates: start: 20040119
  5. VIAGRA [Suspect]
     Indication: ILL-DEFINED DISORDER
     Dosage: 100 MG, ONE TABLET ONE
     Dates: start: 20030104
  6. LIPITOR [Suspect]
     Indication: ILL-DEFINED DISORDER
     Dosage: 20 MG (20 MG,1 IN 1 D), ORAL
     Route: 048
     Dates: start: 20011015
  7. ATENOLOL [Concomitant]
  8. CARDIAC THERAPY (CARDIAC THERAPY) [Concomitant]
  9. ALL OTHER THERAPEUTIC PRODUCTS (ALL OTHER THERAPEUTIC PRODUCTS) [Concomitant]
  10. ASPIRIN [Concomitant]
  11. ISOSORBIDE DINITRATE [Concomitant]
  12. PRILOSEC [Concomitant]
  13. DYAZIDE (HYDROCHLOROTHIAZIDE, TRIAMTERINE) [Concomitant]
  14. DAYPRO [Concomitant]
  15. PLAVIX (CLOPRIDOGREL SULFATE) [Concomitant]

REACTIONS (6)
  - CORONARY ARTERY STENOSIS [None]
  - HEADACHE [None]
  - HYPERTENSION [None]
  - MYOCARDIAL INFARCTION [None]
  - SUBENDOCARDIAL ISCHAEMIA [None]
  - URINARY TRACT INFECTION [None]
